FAERS Safety Report 6090660-4 (Version None)
Quarter: 2009Q1

REPORT INFORMATION
  Report Type: 
  Country: None (occurrence: None)
  Receive Date: 20090223
  Receipt Date: 20090209
  Transmission Date: 20090719
  Serious: Yes (Hospitalization)
  Sender: FDA-Public Use
  Company Number: PAR_02848_2009

PATIENT
  Sex: Female

DRUGS (4)
  1. IBUPROFEN [Suspect]
     Indication: PAIN IN EXTREMITY
     Dosage: DF
     Dates: start: 20080901
  2. ALEVE [Suspect]
     Indication: PAIN IN EXTREMITY
     Dosage: DF
     Dates: start: 20080901
  3. REBIF [Suspect]
     Indication: MULTIPLE SCLEROSIS
     Dosage: 44 ?G 3X/WEEK SUBCUTANEOUS
     Route: 058
     Dates: start: 20080716
  4. NAPROXEN [Suspect]
     Indication: PAIN IN EXTREMITY
     Dosage: DF
     Dates: start: 20080901

REACTIONS (4)
  - GASTRIC ULCER HAEMORRHAGE [None]
  - NAUSEA [None]
  - PAIN IN EXTREMITY [None]
  - VOMITING [None]
